FAERS Safety Report 7010682-6 (Version None)
Quarter: 2010Q3

REPORT INFORMATION
  Report Type: 
  Country: None (occurrence: None)
  Receive Date: 20100923
  Receipt Date: 20100921
  Transmission Date: 20110219
  Serious: Yes (Hospitalization)
  Sender: FDA-Public Use
  Company Number: US-GILEAD-2010-0031755

PATIENT
  Sex: Female
  Weight: 77.43 kg

DRUGS (9)
  1. LETAIRIS [Suspect]
     Indication: PULMONARY ARTERIAL HYPERTENSION
     Route: 048
     Dates: start: 20080123
  2. XOPENEX [Concomitant]
  3. METHYLPREDNISOLONE [Concomitant]
  4. CORGARD [Concomitant]
  5. CARDIZEM [Concomitant]
  6. CEPACOL [Concomitant]
  7. OXYCONTIN [Concomitant]
  8. ATIVAN [Concomitant]
  9. TYLENOL [Concomitant]

REACTIONS (4)
  - DYSPNOEA [None]
  - HAEMOGLOBIN DECREASED [None]
  - PULMONARY FIBROSIS [None]
  - PULMONARY HYPERTENSION [None]
